FAERS Safety Report 9747466 (Version 1)
Quarter: 2013Q4

REPORT INFORMATION
  Report Type: Spontaneous
  Country: NL (occurrence: NL)
  Receive Date: 20131212
  Receipt Date: 20131212
  Transmission Date: 20140711
  Serious: Yes (Other)
  Sender: FDA-Public Use
  Company Number: NL-009507513-1312NLD002137

PATIENT
  Sex: Female

DRUGS (1)
  1. NUVARING [Suspect]
     Dosage: HAS BEEN USING NUVARING FOR YEARS
     Route: 067

REACTIONS (2)
  - Deafness [Not Recovered/Not Resolved]
  - Headache [Not Recovered/Not Resolved]
